FAERS Safety Report 4397303-6 (Version None)
Quarter: 2004Q3

REPORT INFORMATION
  Report Type: 
  Country: None (occurrence: None)
  Receive Date: 20040708
  Receipt Date: 20040622
  Transmission Date: 20050211
  Serious: Yes (Life-Threatening, Hospitalization)
  Sender: FDA-Public Use
  Company Number: DSA_24598_2004

PATIENT
  Age: 54 Year

DRUGS (2)
  1. ENALAPRIL MALEATE [Suspect]
     Indication: HYPERTENSION
     Dosage: 20 MG Q DAY PO
     Route: 048
  2. ^ISNIO (NITRATES)^ [Concomitant]

REACTIONS (2)
  - ANGINA UNSTABLE [None]
  - TROPONIN INCREASED [None]
